FAERS Safety Report 11878245 (Version 1)
Quarter: 2015Q4

REPORT INFORMATION
  Report Type: Spontaneous
  Country: US (occurrence: US)
  Receive Date: 20151230
  Receipt Date: 20151230
  Transmission Date: 20160305
  Serious: Yes (Hospitalization)
  Sender: FDA-Public Use
  Company Number: US-TARO PHARMACEUTICALS USA.,INC-2015SUN02312

PATIENT

DRUGS (1)
  1. WARFARIN [Suspect]
     Active Substance: WARFARIN
     Indication: CORONARY ARTERY ANEURYSM
     Dosage: UNK
     Route: 065

REACTIONS (2)
  - Compartment syndrome [Unknown]
  - Muscle haemorrhage [Unknown]
